FAERS Safety Report 6088900-0 (Version None)
Quarter: 2009Q1

REPORT INFORMATION
  Report Type: 
  Country: None (occurrence: None)
  Receive Date: 20090224
  Receipt Date: 20090213
  Transmission Date: 20090719
  Serious: Yes (Other)
  Sender: FDA-Public Use
  Company Number: US-JNJCH-2009002661

PATIENT
  Age: 72 Year
  Sex: Female
  Weight: 70.3 kg

DRUGS (2)
  1. POLYSPORIN OINTMENT [Suspect]
     Indication: SURGERY
     Dosage: TEXT:COVER AREA 1X
     Route: 061
  2. ALL OTHER NON-THERAPEUTIC PRODUCTS [Suspect]
     Indication: DRUG USE FOR UNKNOWN INDICATION
     Dosage: TEXT:UNSPECIFIED
     Route: 065

REACTIONS (4)
  - ABASIA [None]
  - APPLICATION SITE ERYTHEMA [None]
  - APPLICATION SITE SWELLING [None]
  - OFF LABEL USE [None]
